FAERS Safety Report 16821555 (Version 2)
Quarter: 2019Q3

REPORT INFORMATION
  Report Type: Spontaneous
  Country: FR (occurrence: FR)
  Receive Date: 20190918
  Receipt Date: 20190919
  Transmission Date: 20191005
  Serious: Yes (Other)
  Sender: FDA-Public Use
  Company Number: FR-PFIZER INC-2019394296

PATIENT
  Age: 19 Year
  Sex: Male

DRUGS (5)
  1. RITALINE [Suspect]
     Active Substance: METHYLPHENIDATE HYDROCHLORIDE
     Dosage: UNK
     Route: 065
  2. TRAMADOLUM [TRAMADOL] [Suspect]
     Active Substance: TRAMADOL
     Dosage: UNK
     Route: 065
  3. AMFETAMINE [Suspect]
     Active Substance: AMPHETAMINE
     Indication: DRUG ABUSE
     Dosage: UNK, WEEKLY  (1 TIME PER WEEK)
     Route: 065
     Dates: start: 2016
  4. XANAX [Suspect]
     Active Substance: ALPRAZOLAM
     Dosage: UNK
     Route: 065
  5. CANNABIS [Suspect]
     Active Substance: CANNABIS SATIVA SUBSP. INDICA TOP
     Indication: DRUG ABUSE
     Dosage: UNK, WEEKLY (1 JOINT (BANG) PER WEEK)
     Route: 048

REACTIONS (2)
  - Drug abuse [Not Recovered/Not Resolved]
  - Amnesia [Recovered/Resolved]
